FAERS Safety Report 23056648 (Version 1)
Quarter: 2023Q4

REPORT INFORMATION
  Report Type: Spontaneous
  Country: CN (occurrence: CN)
  Receive Date: 20231011
  Receipt Date: 20231011
  Transmission Date: 20240109
  Serious: Yes (Other)
  Sender: FDA-Public Use
  Company Number: None

PATIENT
  Age: 61 Year
  Sex: Female
  Weight: 64 kg

DRUGS (4)
  1. CYCLOPHOSPHAMIDE [Suspect]
     Active Substance: CYCLOPHOSPHAMIDE
     Indication: Breast cancer female
     Dosage: 1.1 G, EVERY 3 WEEKS, DILUTED WITH 500 ML OF SODIUM CHLORIDE, AT 9:20 HR
     Route: 042
     Dates: start: 20230905, end: 20230905
  2. SODIUM CHLORIDE [Suspect]
     Active Substance: SODIUM CHLORIDE
     Indication: Medication dilution
     Dosage: (INJECTION) 500 ML, EVERY 3 WEEKS, USED TO DILUTE 1.1 G OF CYCLOPHOSPHAMIDE, AT 9:20 HR
     Route: 042
     Dates: start: 20230905, end: 20230905
  3. SODIUM CHLORIDE [Suspect]
     Active Substance: SODIUM CHLORIDE
     Dosage: 250 ML, EVERY 3 WEEKS, USED TO DILUTE 110 MG OF DOXORUBICIN HYDROCHLORIDE, AT 9:20 HR
     Route: 042
     Dates: start: 20230905, end: 20230905
  4. DOXORUBICIN HYDROCHLORIDE [Suspect]
     Active Substance: DOXORUBICIN HYDROCHLORIDE
     Indication: Breast cancer female
     Dosage: 110 MG, EVERY 3 WEEKS, DILUTED WITH 250 ML OF SODIUM CHLORIDE, AT 9:20 HR
     Route: 042
     Dates: start: 20230905, end: 20230905

REACTIONS (3)
  - Myelosuppression [Recovering/Resolving]
  - Pyrexia [Recovered/Resolved]
  - Infection [Recovering/Resolving]

NARRATIVE: CASE EVENT DATE: 20230915
